FAERS Safety Report 9456521 (Version 3)
Quarter: 2014Q1

REPORT INFORMATION
  Report Type: Report from Study
  Country: DE (occurrence: DE)
  Receive Date: 20130813
  Receipt Date: 20140227
  Transmission Date: 20141002
  Serious: Yes (Hospitalization)
  Sender: FDA-Public Use
  Company Number: DE-UCBSA-094645

PATIENT
  Sex: Female

DRUGS (17)
  1. CERTOLIZUMAB [Suspect]
     Indication: RHEUMATOID ARTHRITIS
     Dates: start: 201212, end: 20130324
  2. CERTOLIZUMAB [Suspect]
     Indication: RHEUMATOID ARTHRITIS
     Dosage: 200 MG
     Dates: start: 201005, end: 201211
  3. METHOTREXATE [Concomitant]
     Indication: RHEUMATOID ARTHRITIS
     Dates: start: 201212
  4. METHOTREXATE [Concomitant]
     Indication: RHEUMATOID ARTHRITIS
     Dosage: 10 (UNITS UNSPECIFIED)
     Dates: start: 201009, end: 201211
  5. METHOTREXATE [Concomitant]
     Indication: RHEUMATOID ARTHRITIS
     Dosage: 15 (UNITS UNSPECIFIED)
     Dates: start: 200810, end: 200912
  6. FOLIC ACID [Concomitant]
     Dates: start: 200904
  7. PREDNISOLON [Concomitant]
     Dates: start: 200605
  8. MOBLOC [Concomitant]
     Dates: start: 201106
  9. CALCIUM SANDOZ OSTEO [Concomitant]
     Dates: start: 200606
  10. DEKRISTOL [Concomitant]
     Dates: start: 201106
  11. OMEPRAZOL [Concomitant]
     Dates: start: 200610
  12. OLMETEC PLUS [Concomitant]
     Dates: start: 200809
  13. FORMATRIS NOVOLIZER [Concomitant]
     Dates: start: 200610
  14. XALATAN AT BD [Concomitant]
     Dates: start: 2006
  15. PROLIA [Concomitant]
     Dates: start: 201103
  16. AMITRIPTYLIN [Concomitant]
     Dates: start: 201106
  17. TILIDIN [Concomitant]

REACTIONS (2)
  - Vaginal prolapse [Unknown]
  - Convulsion [Recovered/Resolved]
